FAERS Safety Report 4819023-3 (Version None)
Quarter: 2005Q4

REPORT INFORMATION
  Report Type: 
  Country: None (occurrence: None)
  Receive Date: 20051101
  Receipt Date: 20051020
  Transmission Date: 20060501
  Serious: Yes (Other)
  Sender: FDA-Public Use
  Company Number: 2005146430

PATIENT
  Age: 21 Year
  Sex: Female

DRUGS (3)
  1. DEPO-PROVERA [Suspect]
     Indication: CONTRACEPTION
     Dosage: (FIRST INJECTION), INTRAMUSCULAR; (LAST INJECTION), INTRAMUSCULAR
     Route: 030
     Dates: start: 20000101, end: 20000101
  2. DEPO-PROVERA [Suspect]
     Indication: CONTRACEPTION
     Dosage: (FIRST INJECTION), INTRAMUSCULAR; (LAST INJECTION), INTRAMUSCULAR
     Route: 030
     Dates: start: 20020401, end: 20020401
  3. DEMULEN 1/50-21 TABLET (ETYNODIOL DIACETATE, ETHINYLESTRADIOL) [Suspect]
     Indication: ILL-DEFINED DISORDER
     Dates: start: 20030701

REACTIONS (3)
  - DRUG EXPOSURE BEFORE PREGNANCY [None]
  - OSTEOPOROSIS [None]
  - PREGNANCY [None]
